FAERS Safety Report 5128282-1 (Version None)
Quarter: 2006Q4

REPORT INFORMATION
  Report Type: 
  Country: None (occurrence: None)
  Receive Date: 20061017
  Receipt Date: 20061006
  Transmission Date: 20070319
  Serious: Yes (Other)
  Sender: FDA-Public Use
  Company Number: 2006SE05397

PATIENT
  Age: 48 Year
  Sex: Male

DRUGS (4)
  1. ATENOLOL [Suspect]
     Indication: HYPERTENSION
     Route: 048
     Dates: start: 20060101, end: 20060901
  2. CAVERJECT [Suspect]
     Indication: ERECTILE DYSFUNCTION
     Route: 017
  3. DEPAKOTE [Concomitant]
  4. LIBRAX [Concomitant]

REACTIONS (5)
  - ANXIETY [None]
  - DRUG ADMINISTRATION ERROR [None]
  - DRUG INEFFECTIVE [None]
  - HYPERTENSION [None]
  - TREMOR [None]
